FAERS Safety Report 5513182-5 (Version None)
Quarter: 2007Q4

REPORT INFORMATION
  Report Type: 
  Country: None (occurrence: None)
  Receive Date: 20071112
  Receipt Date: 20070822
  Transmission Date: 20080405
  Serious: No
  Sender: FDA-Public Use
  Company Number: US-BRISTOL-MYERS SQUIBB COMPANY-13885397

PATIENT
  Age: 64 Year
  Sex: Male
  Weight: 118 kg

DRUGS (2)
  1. SUSTIVA [Suspect]
  2. FLOMAX [Concomitant]

REACTIONS (2)
  - NIGHTMARE [None]
  - VISION BLURRED [None]
